FAERS Safety Report 17427240 (Version 1)
Quarter: 2020Q1

REPORT INFORMATION
  Report Type: Spontaneous
  Country: US (occurrence: US)
  Receive Date: 20200218
  Receipt Date: 20200218
  Transmission Date: 20200409
  Serious: No
  Sender: FDA-Public Use
  Company Number: US-GILEAD-2020-0451244

PATIENT
  Sex: Male

DRUGS (11)
  1. POTASSIUM [Concomitant]
     Active Substance: POTASSIUM
  2. EPCLUSA [Suspect]
     Active Substance: SOFOSBUVIR\VELPATASVIR
     Indication: CHRONIC HEPATITIS C
     Dosage: 1 DOSAGE FORM, QD
     Route: 048
     Dates: start: 202001
  3. BETA CAROTENE. [Concomitant]
     Active Substance: BETA CAROTENE
  4. MAGNESIUM GLUCONATE [Concomitant]
     Active Substance: MAGNESIUM GLUCONATE
  5. PREDNISONE. [Concomitant]
     Active Substance: PREDNISONE
  6. MSM [METHYLSULFONYLMETHANE] [Concomitant]
  7. NATURAL COENZYME Q10 50000 [Concomitant]
  8. COPPER GLUCONATE [Concomitant]
     Active Substance: COPPER GLUCONATE
  9. LORATADINE. [Concomitant]
     Active Substance: LORATADINE
  10. ASPIRIN ACTAVIS [Concomitant]
  11. MULTI VITAMIN AND FLUORIDE SUPPLEMENTAL [Concomitant]

REACTIONS (3)
  - Insomnia [Not Recovered/Not Resolved]
  - Constipation [Not Recovered/Not Resolved]
  - Fatigue [Not Recovered/Not Resolved]
